FAERS Safety Report 17007967 (Version 1)
Quarter: 2019Q4

REPORT INFORMATION
  Report Type: Spontaneous
  Country: FR (occurrence: FR)
  Receive Date: 20191108
  Receipt Date: 20191108
  Transmission Date: 20200122
  Serious: Yes (Other)
  Sender: FDA-Public Use
  Company Number: FR-TEVA-2019-FR-1132387

PATIENT
  Sex: Female

DRUGS (3)
  1. PARACETAMOL [Concomitant]
     Active Substance: ACETAMINOPHEN
  2. PARACETAMOL CODEINE TEVA 500 MG/30 MG [Suspect]
     Active Substance: ACETAMINOPHEN\CODEINE PHOSPHATE
     Indication: PAIN
     Route: 065
     Dates: start: 20191025, end: 20191029
  3. AMOXICILLINE ACIDE CLAVULANIQUE TEVA 500 MG/62.5 MG ADULTES [Suspect]
     Active Substance: AMOXICILLIN\CLAVULANIC ACID
     Dosage: FOR 7 DAYS
     Route: 065
     Dates: start: 20191028

REACTIONS (7)
  - Loss of personal independence in daily activities [Unknown]
  - Somnolence [Recovered/Resolved]
  - Hypertensive crisis [Recovered/Resolved]
  - Diarrhoea [Not Recovered/Not Resolved]
  - Paraesthesia [Recovered/Resolved]
  - Constipation [Recovered/Resolved]
  - Chills [Recovered/Resolved]

NARRATIVE: CASE EVENT DATE: 201910
